FAERS Safety Report 4931353-3 (Version None)
Quarter: 2006Q1

REPORT INFORMATION
  Report Type: 
  Country: None (occurrence: None)
  Receive Date: 20060228
  Receipt Date: 20060215
  Transmission Date: 20060701
  Serious: Yes (Other)
  Sender: FDA-Public Use
  Company Number: 2006022439

PATIENT
  Age: 60 Year
  Sex: Male

DRUGS (1)
  1. PIROXICAM [Suspect]
     Indication: OSTEOARTHRITIS
     Dosage: 20 MG, ORAL
     Route: 048

REACTIONS (1)
  - RENAL FAILURE [None]
